FAERS Safety Report 22358012 (Version 2)
Quarter: 2024Q2

REPORT INFORMATION
  Report Type: Other
  Country: JP (occurrence: JP)
  Receive Date: 20230524
  Receipt Date: 20240531
  Transmission Date: 20240716
  Serious: Yes (Disabling, Other)
  Sender: FDA-Public Use
  Company Number: JP-CHUGAI-2023017686

PATIENT
  Age: 82 Year
  Sex: Female

DRUGS (1)
  1. VABYSMO [Suspect]
     Active Substance: FARICIMAB\FARICIMAB-SVOA
     Indication: Neovascular age-related macular degeneration
     Dosage: 6 MG, LEFT EYE
     Route: 050
     Dates: start: 20221124, end: 20230126

REACTIONS (2)
  - Macular degeneration [Not Recovered/Not Resolved]
  - Retinal degeneration [Not Recovered/Not Resolved]

NARRATIVE: CASE EVENT DATE: 20230110
